FAERS Safety Report 6984136-7 (Version None)
Quarter: 2010Q3

REPORT INFORMATION
  Report Type: 
  Country: None (occurrence: None)
  Receive Date: 20100915
  Receipt Date: 20090526
  Transmission Date: 20110219
  Serious: No
  Sender: FDA-Public Use
  Company Number: US-WYE-H09488709

PATIENT
  Sex: Male
  Weight: 81.72 kg

DRUGS (4)
  1. PRISTIQ [Suspect]
     Indication: POST-TRAUMATIC STRESS DISORDER
     Route: 048
     Dates: start: 20090505
  2. VALIUM [Concomitant]
  3. GLUCOPHAGE [Concomitant]
  4. TRAZODONE HCL [Concomitant]

REACTIONS (1)
  - RASH [None]
